FAERS Safety Report 18296542 (Version 1)
Quarter: 2020Q3

REPORT INFORMATION
  Report Type: Spontaneous
  Country: US (occurrence: US)
  Receive Date: 20200922
  Receipt Date: 20200922
  Transmission Date: 20201103
  Serious: No
  Sender: FDA-Public Use
  Company Number: US-PFIZER INC-2020362877

PATIENT
  Age: 68 Year
  Sex: Female

DRUGS (2)
  1. ESTRING [Suspect]
     Active Substance: ESTRADIOL
     Indication: LICHEN SCLEROSUS
     Dosage: 2 MG, EVERY 3 MONTHS (7.5 MCG/24 HOUR)
     Route: 067
     Dates: start: 20190123
  2. ESTRING [Suspect]
     Active Substance: ESTRADIOL
     Indication: ATROPHIC VULVOVAGINITIS
     Dosage: 2 MG, EVERY 3 MONTHS (7.5 MCG/24 HOUR)
     Route: 067
     Dates: start: 20191023

REACTIONS (2)
  - Urinary tract infection [Recovering/Resolving]
  - Vulvitis [Recovering/Resolving]
